FAERS Safety Report 22281119 (Version 3)
Quarter: 2024Q2

REPORT INFORMATION
  Report Type: Report from Study
  Country: US (occurrence: US)
  Receive Date: 20230504
  Receipt Date: 20240614
  Transmission Date: 20240716
  Serious: Yes (Other)
  Sender: FDA-Public Use
  Company Number: US-ABBVIE-4749039

PATIENT
  Sex: Male
  Weight: 93 kg

DRUGS (5)
  1. SKYRIZI [Suspect]
     Active Substance: RISANKIZUMAB-RZAA
     Indication: Psoriasis
     Dosage: LAST ADMIN DATE- OCT 2022
     Route: 058
     Dates: start: 20221020
  2. SKYRIZI [Suspect]
     Active Substance: RISANKIZUMAB-RZAA
     Route: 058
     Dates: start: 20221022
  3. DOFETILIDE [Concomitant]
     Active Substance: DOFETILIDE
     Indication: Cardiac disorder
     Route: 065
  4. SOTALOL [Concomitant]
     Active Substance: SOTALOL
     Indication: Atrial fibrillation
     Route: 048
  5. OMEPRAZOLE [Concomitant]
     Active Substance: DONEPEZIL HYDROCHLORIDE\OMEPRAZOLE\OMEPRAZOLE MAGNESIUM
     Indication: Cardiac disorder
     Route: 065

REACTIONS (4)
  - Cardiac operation [Unknown]
  - Atrial fibrillation [Unknown]
  - Bradycardia [Not Recovered/Not Resolved]
  - Device issue [Unknown]
